FAERS Safety Report 10020309 (Version 2)
Quarter: 2014Q1

REPORT INFORMATION
  Report Type: Report from Study
  Country: JP (occurrence: JP)
  Receive Date: 20140319
  Receipt Date: 20140319
  Transmission Date: 20141002
  Serious: Yes (Hospitalization)
  Sender: FDA-Public Use
  Company Number: JP-UCBSA-102900

PATIENT
  Age: 64 Year
  Sex: Female
  Weight: 53.7 kg

DRUGS (4)
  1. CIMZIA [Suspect]
     Indication: RHEUMATOID ARTHRITIS
     Route: 058
     Dates: start: 20130809, end: 20130823
  2. PREDNISOLONE [Concomitant]
     Dosage: 2.5 MG
     Route: 048
     Dates: start: 20130809, end: 20130823
  3. METOLATE [Concomitant]
     Route: 048
     Dates: end: 20130809
  4. LOXOPROFEN NA [Concomitant]
     Dosage: 180 MG
     Route: 048

REACTIONS (1)
  - Atypical pneumonia [Unknown]
